FAERS Safety Report 18807184 (Version 1)
Quarter: 2021Q1

REPORT INFORMATION
  Report Type: Spontaneous
  Country: US (occurrence: US)
  Receive Date: 20210128
  Receipt Date: 20210128
  Transmission Date: 20210419
  Serious: No
  Sender: FDA-Public Use
  Company Number: None

PATIENT
  Age: 59 Year
  Sex: Female
  Weight: 54.45 kg

DRUGS (2)
  1. SAGE 2% CHLORHEXIDINE GLUCONATE CLOTH [Suspect]
     Active Substance: CHLORHEXIDINE GLUCONATE
     Indication: PREOPERATIVE CARE
     Route: 061
     Dates: start: 20210127, end: 20210127
  2. SAGE 2% CHLORHEXIDINE GLUCONATE CLOTH [Suspect]
     Active Substance: CHLORHEXIDINE GLUCONATE
     Indication: INFECTION PROPHYLAXIS
     Route: 061
     Dates: start: 20210127, end: 20210127

REACTIONS (3)
  - Application site pruritus [None]
  - Rash macular [None]
  - Application site rash [None]

NARRATIVE: CASE EVENT DATE: 20210127
